FAERS Safety Report 18901918 (Version 1)
Quarter: 2021Q1

REPORT INFORMATION
  Report Type: Spontaneous
  Country: DK (occurrence: DK)
  Receive Date: 20210216
  Receipt Date: 20210216
  Transmission Date: 20210420
  Serious: Yes (Hospitalization)
  Sender: FDA-Public Use
  Company Number: NVSC2021DK023637

PATIENT
  Age: 83 Year
  Sex: Female

DRUGS (1)
  1. GLIVEC [Suspect]
     Active Substance: IMATINIB MESYLATE
     Indication: CHRONIC MYELOID LEUKAEMIA
     Dosage: 400 MG, QD
     Route: 048
     Dates: start: 20190527, end: 20190821

REACTIONS (18)
  - Dental caries [Unknown]
  - Hot flush [Unknown]
  - Dizziness [Recovered/Resolved]
  - Onychomadesis [Unknown]
  - Alopecia [Unknown]
  - Cardiac disorder [Unknown]
  - Periorbital oedema [Unknown]
  - Hallucination [Unknown]
  - Skin exfoliation [Unknown]
  - Pneumonia [Recovered/Resolved with Sequelae]
  - Diarrhoea [Recovered/Resolved]
  - Rash [Unknown]
  - Nausea [Recovered/Resolved]
  - Stomatitis [Unknown]
  - Vomiting [Recovered/Resolved]
  - Peripheral swelling [Unknown]
  - Weight decreased [Unknown]
  - Sepsis [Recovered/Resolved]

NARRATIVE: CASE EVENT DATE: 201906
